FAERS Safety Report 5187885-9 (Version None)
Quarter: 2006Q4

REPORT INFORMATION
  Report Type: 
  Country: None (occurrence: None)
  Receive Date: 20061221
  Receipt Date: 20061208
  Transmission Date: 20070319
  Serious: Yes (Other)
  Sender: FDA-Public Use
  Company Number: 2006GB02254

PATIENT
  Age: 15 Year
  Sex: Female

DRUGS (2)
  1. ZOMIG [Suspect]
     Indication: MIGRAINE
     Route: 048
     Dates: start: 20061207, end: 20061207
  2. ACETAMINOPHEN [Concomitant]
     Indication: MIGRAINE

REACTIONS (3)
  - FACIAL PAIN [None]
  - PAIN IN JAW [None]
  - THROAT TIGHTNESS [None]
